FAERS Safety Report 9942415 (Version 2)
Quarter: 2014Q1

REPORT INFORMATION
  Report Type: Spontaneous
  Country: US (occurrence: US)
  Receive Date: 20140303
  Receipt Date: 20140327
  Transmission Date: 20141002
  Serious: Yes (Hospitalization)
  Sender: FDA-Public Use
  Company Number: US-B.I. PHARMACEUTICALS,INC./RIDGEFIELD-2014-BI-07852BP

PATIENT
  Age: 55 Year
  Sex: Female
  Weight: 68.5 kg

DRUGS (11)
  1. TRADJENTA [Suspect]
     Indication: TYPE 2 DIABETES MELLITUS
     Dosage: 5 MG
     Route: 048
     Dates: start: 201303, end: 20140214
  2. GLIPIZIDE ER 2.5MG TB24 [Concomitant]
     Dosage: 2.5 MG
     Route: 065
  3. AMOXICILLIN 875MG TABS [Concomitant]
     Dosage: 1750 MG
     Route: 065
  4. METOPROLOL TARTRATE [Concomitant]
     Indication: HYPERTENSION
     Dosage: 100 MG
     Route: 048
  5. METFORMIN HCL ER 500 MG [Concomitant]
     Indication: TYPE 2 DIABETES MELLITUS
     Dosage: 1000 MG
     Route: 048
     Dates: start: 2009
  6. METFORMIN HCL ER 500 MG [Concomitant]
     Route: 065
  7. LISINOPRIL-HYDROCHLOROTHIAZIDE [Concomitant]
     Indication: HYPERTENSION
     Dosage: DOSE PER APPLICATION: 20MG/25MG; DAILY DOSE: 20MG/25MG
     Route: 048
  8. LIVALO [Concomitant]
     Indication: BLOOD CHOLESTEROL INCREASED
     Route: 048
  9. LIVALO [Concomitant]
     Dosage: 2 MG
     Route: 065
  10. FLUOXETINE HCL 20MG TABS [Concomitant]
     Dosage: 20 MG
     Route: 048
  11. FREESTYLE LITE TEST STRP [Concomitant]
     Route: 065

REACTIONS (8)
  - Pancreatic cyst [Not Recovered/Not Resolved]
  - Abdominal pain upper [Not Recovered/Not Resolved]
  - Pancreatitis [Recovered/Resolved]
  - Nausea [Not Recovered/Not Resolved]
  - Diarrhoea [Unknown]
  - Abdominal pain upper [Unknown]
  - Hyperhidrosis [Unknown]
  - Nausea [Unknown]
